FAERS Safety Report 14236778 (Version 3)
Quarter: 2017Q4

REPORT INFORMATION
  Report Type: Report from Study
  Country: DE (occurrence: DE)
  Receive Date: 20171129
  Receipt Date: 20171221
  Transmission Date: 20180321
  Serious: Yes (Hospitalization)
  Sender: FDA-Public Use
  Company Number: PHHY2017DE173912

PATIENT
  Sex: Female

DRUGS (6)
  1. TASIGNA [Suspect]
     Active Substance: NILOTINIB
     Indication: CHRONIC MYELOID LEUKAEMIA
     Dosage: 600 MG, QD
     Route: 065
     Dates: start: 20161129
  2. TASIGNA [Suspect]
     Active Substance: NILOTINIB
     Dosage: 600 MG, QD
     Route: 065
     Dates: start: 20171026, end: 20171116
  3. MIRTAZAPINE. [Concomitant]
     Active Substance: MIRTAZAPINE
     Indication: DEPRESSION
     Dosage: 7.5 MG, QD
     Route: 065
     Dates: start: 201608, end: 20161219
  4. TAVOR (LORAZEPAM) [Concomitant]
     Active Substance: LORAZEPAM
     Indication: ANXIETY DISORDER
     Dosage: 0.5 MG, PRN (ON DEMAND)
     Route: 065
     Dates: start: 20170116
  5. MIRTAZAPINE. [Concomitant]
     Active Substance: MIRTAZAPINE
     Indication: ANXIETY DISORDER
  6. PANTOPRAZOLE [Concomitant]
     Active Substance: PANTOPRAZOLE
     Indication: GASTRITIS
     Dosage: 20 MG, QD
     Route: 065
     Dates: start: 20161219

REACTIONS (6)
  - Cystitis [Unknown]
  - Extrasystoles [Unknown]
  - Pericarditis [Unknown]
  - Abdominal pain upper [Unknown]
  - Eye disorder [Unknown]
  - Tenosynovitis [Unknown]

NARRATIVE: CASE EVENT DATE: 20171020
